FAERS Safety Report 21960604 (Version 1)
Quarter: 2023Q1

REPORT INFORMATION
  Report Type: Spontaneous
  Country: SE (occurrence: SE)
  Receive Date: 20230207
  Receipt Date: 20230207
  Transmission Date: 20230417
  Serious: Yes (Other)
  Sender: FDA-Public Use
  Company Number: None

PATIENT
  Age: 75 Year
  Sex: Female

DRUGS (1)
  1. VAGIFEM [Suspect]
     Active Substance: ESTRADIOL
     Indication: Uterine prolapse
     Dosage: 1 TABLET DAILY FOR 2 WEEKS THEN 2 TIMES/WEEK
     Dates: start: 20210201, end: 20211105

REACTIONS (3)
  - Confusional state [Recovering/Resolving]
  - Amnesia [Recovering/Resolving]
  - Product use in unapproved indication [Unknown]

NARRATIVE: CASE EVENT DATE: 20210101
